FAERS Safety Report 9831524 (Version 1)
Quarter: 2014Q1

REPORT INFORMATION
  Report Type: Spontaneous
  Country: US (occurrence: US)
  Receive Date: 20140121
  Receipt Date: 20140121
  Transmission Date: 20141002
  Serious: Yes (Hospitalization)
  Sender: FDA-Public Use
  Company Number: US-ASTRAZENECA-2014SE02979

PATIENT
  Age: 52 Year
  Sex: Male

DRUGS (2)
  1. BRILINTA [Suspect]
     Route: 048
  2. EFFIENT [Concomitant]

REACTIONS (2)
  - Myocardial infarction [Unknown]
  - Dyspnoea [Unknown]
